FAERS Safety Report 11420961 (Version 4)
Quarter: 2015Q4

REPORT INFORMATION
  Report Type: Spontaneous
  Country: US (occurrence: US)
  Receive Date: 20150826
  Receipt Date: 20151113
  Transmission Date: 20160304
  Serious: No
  Sender: FDA-Public Use
  Company Number: US-PFIZER INC-2015281852

PATIENT
  Age: 14 Year
  Sex: Female

DRUGS (7)
  1. SYNTHROID [Concomitant]
     Active Substance: LEVOTHYROXINE SODIUM
     Dosage: 88 MG, DAILY
  2. XALKORI [Suspect]
     Active Substance: CRIZOTINIB
     Indication: NEUROBLASTOMA
     Dosage: 450 MG, 2X/DAY
     Dates: start: 20150709, end: 20150710
  3. XALKORI [Suspect]
     Active Substance: CRIZOTINIB
     Dosage: 450 MG, 1X/DAY
     Route: 048
     Dates: start: 201507
  4. ACCUTANE [Concomitant]
     Active Substance: ISOTRETINOIN
     Dosage: UNK
  5. SEPTRAN [Concomitant]
     Dosage: 2D/WK
  6. XALKORI [Suspect]
     Active Substance: CRIZOTINIB
     Dosage: 450 MG, 2X/DAY
     Dates: start: 20150713, end: 20150724
  7. XALKORI [Suspect]
     Active Substance: CRIZOTINIB
     Dosage: 200 MG, 2X/DAY
     Dates: start: 20150727, end: 20150731

REACTIONS (12)
  - Fall [Recovered/Resolved]
  - Visual impairment [Recovered/Resolved]
  - Dizziness [Recovered/Resolved]
  - Headache [Recovered/Resolved]
  - Fatigue [Recovered/Resolved]
  - Malaise [Unknown]
  - Decreased appetite [Recovered/Resolved]
  - Nausea [Recovered/Resolved]
  - Chest discomfort [Recovered/Resolved]
  - Vomiting [Recovered/Resolved]
  - Diarrhoea [Recovered/Resolved]
  - Product use issue [Unknown]

NARRATIVE: CASE EVENT DATE: 2015
